FAERS Safety Report 7064903-4 (Version None)
Quarter: 2010Q4

REPORT INFORMATION
  Report Type: 
  Country: None (occurrence: None)
  Receive Date: 20101027
  Receipt Date: 20101025
  Transmission Date: 20110411
  Serious: Yes (Hospitalization)
  Sender: FDA-Public Use
  Company Number: CH-WYE-H16095010

PATIENT
  Sex: Female
  Weight: 74 kg

DRUGS (6)
  1. LAPATINIB [Suspect]
     Indication: BREAST CANCER
     Route: 048
     Dates: start: 20100114, end: 20100616
  2. INSULIN ASPART [Concomitant]
     Indication: DIABETES MELLITUS
     Dosage: NOT PROVIDED
     Route: 065
     Dates: start: 20050701
  3. INSULIN DETEMIR [Concomitant]
     Indication: DIABETES MELLITUS
     Dosage: NOT PROVIDED
     Route: 065
     Dates: start: 20050601
  4. INSULIN DETEMIR [Concomitant]
  5. CAPECITABINE [Suspect]
     Indication: BREAST CANCER
     Dosage: 1800 MG DAILY (DAY 1 THROUGH 14)
     Route: 048
     Dates: start: 20100114, end: 20100616
  6. FENTANYL CITRATE [Concomitant]
     Indication: PAIN
     Dosage: NOT PROVIDED
     Route: 065
     Dates: start: 20100123

REACTIONS (4)
  - ALVEOLITIS [None]
  - NAUSEA [None]
  - PYREXIA [None]
  - VOMITING [None]
